FAERS Safety Report 6733346-2 (Version None)
Quarter: 2010Q2

REPORT INFORMATION
  Report Type: 
  Country: None (occurrence: None)
  Receive Date: 20100520
  Receipt Date: 20100512
  Transmission Date: 20101027
  Serious: Yes (Other)
  Sender: FDA-Public Use
  Company Number: GR-PFIZER INC-2010060186

PATIENT
  Sex: Female

DRUGS (1)
  1. XANAX [Suspect]
     Dosage: 0.75 MG IN THE MORNING + 0.5 MG IN THE AFTERNOON AND EVENING
     Route: 048

REACTIONS (4)
  - ARRHYTHMIA [None]
  - HEADACHE [None]
  - TREMOR [None]
  - WITHDRAWAL SYNDROME [None]
